FAERS Safety Report 4499581-1 (Version None)
Quarter: 2004Q4

REPORT INFORMATION
  Report Type: 
  Country: None (occurrence: None)
  Receive Date: 20040928
  Receipt Date: 20040816
  Transmission Date: 20050328
  Serious: No
  Sender: FDA-Public Use
  Company Number: 04P-163-0270801-00

PATIENT
  Age: 58 Year
  Sex: Female
  Weight: 68.0396 kg

DRUGS (8)
  1. HUMIRA [Suspect]
     Indication: RHEUMATOID ARTHRITIS
     Dosage: 40 MG SUBCUTANEOUS
     Route: 058
     Dates: start: 20040814
  2. METHOTREXATE [Concomitant]
  3. NABUMETONE [Concomitant]
  4. VICODIN [Concomitant]
  5. CARISOPRODOL [Concomitant]
  6. THYROID TAB [Concomitant]
  7. FOLIC ACID [Concomitant]
  8. CYCLOBENZAPRINE HYDROCHLORIDE [Concomitant]

REACTIONS (2)
  - INJECTION SITE BURNING [None]
  - PAIN IN EXTREMITY [None]
